FAERS Safety Report 8431807-1 (Version None)
Quarter: 2012Q2

REPORT INFORMATION
  Report Type: 
  Country: None (occurrence: None)
  Receive Date: 20120323
  Receipt Date: 20110628
  Transmission Date: 20120825
  Serious: Yes (Hospitalization)
  Sender: FDA-Public Use
  Company Number: 163-21880-11063794

PATIENT
  Age: 64 Year
  Sex: Female

DRUGS (7)
  1. REVLIMID [Suspect]
     Indication: LYMPHOCYTIC LEUKAEMIA
     Dosage: 15 MG, 1 IN 1 D, PO
     Route: 048
     Dates: start: 20110301, end: 20110101
  2. FAMCICLOVIR (FAMCICLOVIR) (UNKNOWN) [Concomitant]
  3. BONIVA [Concomitant]
  4. DEXAMETHASONE [Concomitant]
  5. SYNTHROID [Concomitant]
  6. SULFAMETHOXAZOLE (SULFAMETHOXAZOLE) (UNKNOWN) [Concomitant]
  7. FOLIC ACID (FOLIC ACID) (UNKNOWN) [Concomitant]

REACTIONS (2)
  - WEIGHT DECREASED [None]
  - DYSPNOEA [None]
